APPROVED DRUG PRODUCT: RENORMAX
Active Ingredient: SPIRAPRIL HYDROCHLORIDE
Strength: 24MG
Dosage Form/Route: TABLET;ORAL
Application: N020240 | Product #004
Applicant: SCHERING CORP
Approved: Dec 29, 1994 | RLD: No | RS: No | Type: DISCN